FAERS Safety Report 9678625 (Version 1)
Quarter: 2013Q4

REPORT INFORMATION
  Report Type: Spontaneous
  Country: US (occurrence: US)
  Receive Date: 20131108
  Receipt Date: 20131108
  Transmission Date: 20140711
  Serious: No
  Sender: FDA-Public Use
  Company Number: US-ROXANE LABORATORIES, INC.-2013-RO-01806RO

PATIENT
  Age: 40 Year
  Sex: Female

DRUGS (1)
  1. FLUTICASONE [Suspect]
     Indication: MIDDLE EAR EFFUSION
     Route: 045
     Dates: start: 20131101, end: 20131104

REACTIONS (4)
  - Vomiting [Recovered/Resolved]
  - Hypoaesthesia [Not Recovered/Not Resolved]
  - Vertigo [Not Recovered/Not Resolved]
  - Chest pain [Unknown]
